FAERS Safety Report 5410411-3 (Version None)
Quarter: 2007Q3

REPORT INFORMATION
  Report Type: 
  Country: None (occurrence: None)
  Receive Date: 20070713
  Receipt Date: 20070604
  Transmission Date: 20080115
  Serious: No
  Sender: FDA-Public Use
  Company Number: 2007SP002088

PATIENT
  Age: 52 Year
  Sex: Male
  Weight: 77.1115 kg

DRUGS (5)
  1. LUNESTA [Suspect]
     Indication: INSOMNIA
     Dosage: 3 MG;PRN;ORAL
     Route: 048
     Dates: start: 20060101
  2. ANTIHISTAMINE ALLERGY RELIEF [Concomitant]
  3. MELATONIN [Concomitant]
  4. TYLENOL [Concomitant]
  5. ASPIRIN [Concomitant]

REACTIONS (1)
  - INSOMNIA [None]
